FAERS Safety Report 10873713 (Version 1)
Quarter: 2015Q1

REPORT INFORMATION
  Report Type: Spontaneous
  Country: US (occurrence: None)
  Receive Date: 20150223
  Receipt Date: 20150223
  Transmission Date: 20150721
  Serious: Yes (Other)
  Sender: FDA-Public Use
  Company Number: None

PATIENT
  Age: 33 Year
  Sex: Male
  Weight: 95.26 kg

DRUGS (11)
  1. VANCOMYCIN [Suspect]
     Active Substance: VANCOMYCIN
     Indication: BACTERIAL INFECTION
     Route: 042
     Dates: start: 20150122, end: 20150209
  2. GENTAMICIN SULFATE. [Concomitant]
     Active Substance: GENTAMICIN SULFATE
  3. ATENOLOL. [Concomitant]
     Active Substance: ATENOLOL
  4. VANCOMYCIN HCL [Concomitant]
     Active Substance: VANCOMYCIN HYDROCHLORIDE
  5. NORMAL SALINE FLUSH [Concomitant]
     Active Substance: SODIUM CHLORIDE
  6. COUMADIN [Concomitant]
     Active Substance: WARFARIN SODIUM
  7. ACETAMINOPHEN. [Concomitant]
     Active Substance: ACETAMINOPHEN
  8. SODIUM CHLORIDE. [Concomitant]
     Active Substance: SODIUM CHLORIDE
  9. WELLBUTRIN XL [Concomitant]
     Active Substance: BUPROPION HYDROCHLORIDE
  10. HEPARIN [Concomitant]
     Active Substance: HEPARIN SODIUM
  11. ANAPHYLACTIC KIT [Concomitant]

REACTIONS (1)
  - Renal failure [None]

NARRATIVE: CASE EVENT DATE: 20150209
